FAERS Safety Report 8047147-9 (Version None)
Quarter: 2012Q1

REPORT INFORMATION
  Report Type: 
  Country: None (occurrence: None)
  Receive Date: 20120116
  Receipt Date: 20120110
  Transmission Date: 20120608
  Serious: Yes (Other)
  Sender: FDA-Public Use
  Company Number: CN-JNJFOC-20120104193

PATIENT

DRUGS (5)
  1. ACTH [Suspect]
     Route: 041
  2. VITAMIN B6 [Suspect]
     Indication: CONVULSION
     Route: 042
  3. ACTH [Suspect]
     Indication: CONVULSION
     Route: 041
  4. TOPIRAMATE [Suspect]
     Indication: CONVULSION
     Route: 048
  5. IMMUNE GLOBULIN INTRAVENOUS (HUMAN) [Suspect]
     Indication: CONVULSION
     Route: 065

REACTIONS (2)
  - LISSENCEPHALY [None]
  - INFANTILE SPASMS [None]
